FAERS Safety Report 23681060 (Version 1)
Quarter: 2024Q1

REPORT INFORMATION
  Report Type: Spontaneous
  Country: GB (occurrence: GB)
  Receive Date: 20240328
  Receipt Date: 20240328
  Transmission Date: 20240410
  Serious: Yes (Hospitalization)
  Sender: FDA-Public Use
  Company Number: None

PATIENT
  Age: 93 Year
  Sex: Female

DRUGS (18)
  1. CEPHALEXIN [Suspect]
     Active Substance: CEPHALEXIN
     Indication: Product used for unknown indication
     Dosage: 1500 MILLIGRAM, QD (CAPSULE) (500 MG CAPSULES)
     Route: 065
     Dates: start: 20230810, end: 20230814
  2. CIPROFLOXACIN [Suspect]
     Active Substance: CIPROFLOXACIN
     Indication: Product used for unknown indication
     Dosage: 800 MILLIGRAM, QD (200 MILLILITER INFUSION) (400 MILLIGRAM IN 200 MILLILITER INFUSION)
     Route: 065
     Dates: start: 20230806, end: 20230807
  3. LANSOPRAZOLE [Suspect]
     Active Substance: LANSOPRAZOLE
     Indication: Product used for unknown indication
     Dosage: 60 MILLIGRAM, QD (GASTRO-RESISTANT CAPSULE) (LANSOPRAZOLE 30MILLIGRAM GASTRO-RESISTANT CAPSULES ONE
     Route: 065
     Dates: start: 20230806
  4. AZTREONAM [Suspect]
     Active Substance: AZTREONAM
     Indication: Product used for unknown indication
     Dosage: 3 GRAM, QD
     Route: 065
     Dates: start: 20230823, end: 20230903
  5. CLARITHROMYCIN [Suspect]
     Active Substance: CLARITHROMYCIN
     Indication: Product used for unknown indication
     Dosage: 1000 MILLIGRAM, QD
     Route: 065
     Dates: start: 20230805, end: 20230806
  6. MEROPENEM [Suspect]
     Active Substance: MEROPENEM
     Indication: Product used for unknown indication
     Dosage: 1 GRAM QD,
     Route: 065
  7. MEROPENEM [Suspect]
     Active Substance: MEROPENEM
     Dosage: 1 GRAM, BID
     Route: 065
  8. MEROPENEM [Suspect]
     Active Substance: MEROPENEM
     Dosage: 1 GRAM, TID
     Route: 065
  9. CALCIUM CARBONATE\CHOLECALCIFEROL [Concomitant]
     Active Substance: CALCIUM CARBONATE\CHOLECALCIFEROL
     Indication: Product used for unknown indication
     Dosage: 2 DOSAGE FORM, QD
     Route: 065
     Dates: start: 20240228
  10. AMLODIPINE [Concomitant]
     Active Substance: AMLODIPINE BESYLATE
     Indication: Product used for unknown indication
     Dosage: 5 MILLIGRAM, QD
     Route: 065
  11. AproDerm [Concomitant]
     Indication: Product used for unknown indication
     Dosage: UNK, PRN (COLLOIDAL OAT CREAM)
     Route: 065
  12. DOCUSATE [Concomitant]
     Active Substance: DOCUSATE
     Indication: Product used for unknown indication
     Dosage: 100 MILLIGRAM, PRN (1 OR 2 DAILY)
     Route: 065
  13. Evolve HA [Concomitant]
     Indication: Product used for unknown indication
     Dosage: UNK, BID (PRESERVATIVE FREE) (AS DIRECTED) (PRN)
     Route: 065
  14. POTASSIUM BICARBONATE\SODIUM ALGINATE [Concomitant]
     Active Substance: POTASSIUM BICARBONATE\SODIUM ALGINATE
     Indication: Product used for unknown indication
     Dosage: UNK, (ONE OR TWO 5MILLILITER SPOONFUL^S TO BE TAKEN) (AFTER FOOD AND AT NIGHT) (SODIUM ALGINATE 500M
     Route: 065
  15. MOMETASONE [Concomitant]
     Active Substance: MOMETASONE
     Indication: Product used for unknown indication
     Dosage: 4 DOSAGE FORM, QD
     Route: 065
  16. ACETAMINOPHEN [Concomitant]
     Active Substance: ACETAMINOPHEN
     Indication: Product used for unknown indication
     Dosage: 2000 MILLIGRAM, QD (EVERY 4-6 HOURS)
     Route: 065
  17. PRAMIPEXOLE [Concomitant]
     Active Substance: PRAMIPEXOLE\PRAMIPEXOLE DIHYDROCHLORIDE
     Indication: Product used for unknown indication
     Dosage: 88 MICROGRAM, HS
     Route: 065
  18. SENNA [Concomitant]
     Active Substance: SENNA LEAF\SENNOSIDES\SENNOSIDES A AND B
     Indication: Constipation
     Dosage: 7.5 MILLIGRAM, PRN (TWO TO BE TAKEN AT NIGHT)
     Route: 065

REACTIONS (1)
  - Clostridium test positive [Unknown]

NARRATIVE: CASE EVENT DATE: 20230830
